FAERS Safety Report 13047496 (Version 1)
Quarter: 2016Q4

REPORT INFORMATION
  Report Type: Spontaneous
  Country: US (occurrence: US)
  Receive Date: 20161220
  Receipt Date: 20161220
  Transmission Date: 20170207
  Serious: No
  Sender: FDA-Public Use
  Company Number: US-ACTAVIS-2016-08638

PATIENT
  Sex: Female

DRUGS (1)
  1. MICONAZOLE NITRATE (AMALLC) [Suspect]
     Active Substance: MICONAZOLE NITRATE
     Indication: FUNGAL INFECTION
     Dosage: 1 SUPPOSITORY, DAILY
     Route: 067
     Dates: start: 20160418

REACTIONS (1)
  - Application site haemorrhage [Not Recovered/Not Resolved]
